FAERS Safety Report 11243452 (Version 1)
Quarter: 2015Q3

REPORT INFORMATION
  Report Type: Report from Study
  Country: CA (occurrence: CA)
  Receive Date: 20150707
  Receipt Date: 20150707
  Transmission Date: 20151125
  Serious: Yes (Other)
  Sender: FDA-Public Use
  Company Number: CA-JNJFOC-20150514968

PATIENT
  Age: 41 Year
  Sex: Male
  Weight: 90 kg

DRUGS (5)
  1. VITAMIN C [Concomitant]
     Active Substance: ASCORBIC ACID
     Route: 065
  2. HYDROMORPH [Concomitant]
     Active Substance: HYDROMORPHONE
     Route: 065
  3. VITAMIN D [Concomitant]
     Active Substance: CHOLECALCIFEROL
     Route: 065
  4. REMICADE [Suspect]
     Active Substance: INFLIXIMAB
     Indication: CROHN^S DISEASE
     Route: 042
     Dates: start: 20130119
  5. PREDNISONE. [Concomitant]
     Active Substance: PREDNISONE
     Route: 065

REACTIONS (7)
  - Infusion related reaction [Unknown]
  - Rectourethral fistula [Recovered/Resolved]
  - Hyperhidrosis [Unknown]
  - Abscess [Recovered/Resolved]
  - Blood pressure increased [Unknown]
  - Dyspnoea [Unknown]
  - Abdominal pain [Unknown]

NARRATIVE: CASE EVENT DATE: 201505
